FAERS Safety Report 7602180-3 (Version None)
Quarter: 2011Q3

REPORT INFORMATION
  Report Type: 
  Country: None (occurrence: None)
  Receive Date: 20110711
  Receipt Date: 20110707
  Transmission Date: 20111222
  Serious: Yes (Life-Threatening, Other)
  Sender: FDA-Public Use
  Company Number: JP-ASTRAZENECA-2011SE34850

PATIENT
  Age: 69 Year
  Sex: Male
  Weight: 70 kg

DRUGS (7)
  1. SIGMART [Concomitant]
     Indication: ANGINA PECTORIS
     Route: 048
  2. ULTIVA [Concomitant]
     Route: 042
     Dates: start: 20110527
  3. ISOZOL [Concomitant]
     Route: 042
     Dates: start: 20110527
  4. ROCURONIUM BROMIDE [Concomitant]
     Route: 042
     Dates: start: 20110527
  5. ASPIRIN [Concomitant]
     Indication: ANGINA PECTORIS
     Route: 048
  6. CEFMETAZOLE NA [Concomitant]
     Route: 042
  7. ROPIVACAINE HYDROCHLORIDE [Suspect]
     Indication: NERVE BLOCK
     Route: 053
     Dates: start: 20110527

REACTIONS (12)
  - ECHOCARDIOGRAM [None]
  - ARTERIOGRAM CORONARY [None]
  - HYPOTHERMIA [None]
  - BLOOD PRESSURE DECREASED [None]
  - VENTRICULAR FIBRILLATION [None]
  - CARDIOTOXICITY [None]
  - CARDIAC ARREST [None]
  - DRUG INEFFECTIVE [None]
  - RESUSCITATION [None]
  - CORONARY ARTERY STENOSIS [None]
  - ERYTHEMA [None]
  - ANAPHYLACTIC SHOCK [None]
